FAERS Safety Report 19120041 (Version 1)
Quarter: 2021Q2

REPORT INFORMATION
  Report Type: Spontaneous
  Country: US (occurrence: US)
  Receive Date: 20210412
  Receipt Date: 20210412
  Transmission Date: 20210717
  Serious: Yes (Other)
  Sender: FDA-Public Use
  Company Number: US-ELI_LILLY_AND_COMPANY-US202104002456

PATIENT
  Sex: Male

DRUGS (6)
  1. BASAGLAR [Suspect]
     Active Substance: INSULIN GLARGINE
     Indication: DIABETES MELLITUS
     Dosage: 35?40 U, UNKNOWN
     Route: 065
     Dates: start: 2016
  2. BASAGLAR [Suspect]
     Active Substance: INSULIN GLARGINE
     Dosage: 35?40 U, UNKNOWN
     Route: 065
  3. BASAGLAR [Suspect]
     Active Substance: INSULIN GLARGINE
     Dosage: 35?40 U, UNKNOWN
     Route: 065
  4. LANTUS [Concomitant]
     Active Substance: INSULIN GLARGINE
     Indication: PRODUCT USED FOR UNKNOWN INDICATION
  5. BASAGLAR [Suspect]
     Active Substance: INSULIN GLARGINE
     Dosage: 35?40 U, UNKNOWN
     Route: 065
  6. BASAGLAR [Suspect]
     Active Substance: INSULIN GLARGINE
     Dosage: 35?40 U, UNKNOWN
     Route: 065

REACTIONS (3)
  - Blood glucose increased [Unknown]
  - Blood glucose decreased [Unknown]
  - Erythema [Unknown]
